FAERS Safety Report 5938674-6 (Version None)
Quarter: 2008Q4

REPORT INFORMATION
  Report Type: 
  Country: None (occurrence: None)
  Receive Date: 20081103
  Receipt Date: 20081027
  Transmission Date: 20090506
  Serious: Yes (Disabling)
  Sender: FDA-Public Use
  Company Number: AU-MERCK-0810AUS00151

PATIENT
  Age: 59 Year
  Sex: Male
  Weight: 90 kg

DRUGS (4)
  1. ZOCOR [Suspect]
     Route: 048
     Dates: start: 20000101
  2. ZOCOR [Suspect]
     Route: 048
     Dates: end: 20050101
  3. ZOCOR [Suspect]
     Route: 048
     Dates: start: 20050101
  4. ZOCOR [Suspect]
     Route: 048
     Dates: end: 20080101

REACTIONS (3)
  - ERECTILE DYSFUNCTION [None]
  - LOSS OF LIBIDO [None]
  - MYOPATHY [None]
